FAERS Safety Report 7813042-0 (Version None)
Quarter: 2011Q4

REPORT INFORMATION
  Report Type: 
  Country: None (occurrence: None)
  Receive Date: 20111013
  Receipt Date: 20110929
  Transmission Date: 20120403
  Serious: Yes (Other)
  Sender: FDA-Public Use
  Company Number: SG-BAYER-2011-092807

PATIENT
  Age: 45 Year
  Sex: Female

DRUGS (5)
  1. NAPROXEN SODIUM [Suspect]
     Route: 048
  2. VOLTAREN [Suspect]
     Route: 048
  3. ASPIRIN [Suspect]
     Route: 048
  4. INDOMETACIN [Suspect]
     Route: 048
  5. PENICILLIN G [Suspect]

REACTIONS (1)
  - ANGIOEDEMA [None]
